FAERS Safety Report 6829357 (Version 6)
Quarter: 2025Q1

REPORT INFORMATION
  Report Type: Spontaneous
  Country: US (occurrence: US)
  Receive Date: 20081202
  Receipt Date: 20250325
  Transmission Date: 20250408
  Serious: Yes (Other)
  Sender: AMGEN
  Company Number: US-AMGEN-KDL264778

PATIENT
  Age: 30 Year
  Sex: Female

DRUGS (14)
  1. ENBREL [Suspect]
     Active Substance: ETANERCEPT
     Indication: Rheumatoid arthritis
     Dosage: 25 MILLIGRAM, 2 TIMES/WK
     Route: 058
     Dates: start: 20040101, end: 200412
  2. ENBREL [Suspect]
     Active Substance: ETANERCEPT
     Dosage: 50 MILLIGRAM, QWK
     Route: 065
     Dates: start: 200507, end: 200508
  3. ENBREL [Suspect]
     Active Substance: ETANERCEPT
     Dosage: 25 MILLIGRAM, 2 TIMES/WK
     Route: 065
     Dates: start: 2006, end: 200609
  4. ENBREL [Suspect]
     Active Substance: ETANERCEPT
     Dosage: 25 MILLIGRAM, 2 TIMES/WK
     Route: 058
     Dates: start: 200710, end: 2012
  5. HUMIRA [Concomitant]
     Active Substance: ADALIMUMAB
     Dates: start: 200508, end: 200509
  6. PLAQUENIL [Concomitant]
     Active Substance: HYDROXYCHLOROQUINE SULFATE
     Dosage: 400 MILLIGRAM, QD
     Dates: start: 200710, end: 200710
  7. FLONASE [Concomitant]
     Active Substance: FLUTICASONE PROPIONATE
  8. CLARITIN [Concomitant]
     Active Substance: LORATADINE
  9. PEPCID [Concomitant]
     Active Substance: FAMOTIDINE
  10. ADVAIR HFA [Concomitant]
     Active Substance: FLUTICASONE PROPIONATE\SALMETEROL XINAFOATE
     Dosage: 250 MILLIGRAM, BID
  11. ADVAIR HFA [Concomitant]
     Active Substance: FLUTICASONE PROPIONATE\SALMETEROL XINAFOATE
     Dosage: 50 MILLIGRAM, BID
  12. FOLIC ACID [Concomitant]
     Active Substance: FOLIC ACID
     Dosage: 4 MILLIGRAM, QD
  13. VITAMINS [Concomitant]
     Active Substance: VITAMINS
  14. LOVENOX [Concomitant]
     Active Substance: ENOXAPARIN SODIUM
     Dosage: UNK, BID
     Route: 058

REACTIONS (9)
  - Eclampsia [Unknown]
  - Rheumatoid arthritis [Recovered/Resolved]
  - Morning sickness [Unknown]
  - Nausea [Unknown]
  - Vomiting [Unknown]
  - Nasopharyngitis [Unknown]
  - Maternal exposure during pregnancy [Recovered/Resolved]
  - Premature delivery [Recovered/Resolved]
  - Therapeutic response unexpected [Unknown]

NARRATIVE: CASE EVENT DATE: 20050101
